FAERS Safety Report 4358439-9 (Version None)
Quarter: 2004Q2

REPORT INFORMATION
  Report Type: 
  Country: None (occurrence: None)
  Receive Date: 20040514
  Receipt Date: 20040510
  Transmission Date: 20050107
  Serious: Yes (Other)
  Sender: FDA-Public Use
  Company Number: CH-ROCHE-367178

PATIENT
  Age: 77 Year
  Sex: Male

DRUGS (1)
  1. TORSEMIDE [Suspect]
     Indication: ASCITES
     Route: 048
     Dates: start: 20040422, end: 20040429

REACTIONS (1)
  - PURPURA [None]
